FAERS Safety Report 8367270-9 (Version None)
Quarter: 2012Q2

REPORT INFORMATION
  Report Type: 
  Country: None (occurrence: None)
  Receive Date: 20120517
  Receipt Date: 20120508
  Transmission Date: 20120825
  Serious: Yes (Death)
  Sender: FDA-Public Use
  Company Number: PHHO2006US20288

PATIENT
  Sex: Male
  Weight: 72.3 kg

DRUGS (8)
  1. ALLOPURINOL [Concomitant]
  2. METOPROLOL TARTRATE [Concomitant]
     Indication: HYPERTENSION
  3. TASIGNA [Suspect]
     Dosage: NO TREATMENT
     Dates: start: 20060903, end: 20060909
  4. TASIGNA [Suspect]
     Dosage: 600 MG, QD
     Route: 048
     Dates: end: 20061015
  5. HYDROCHLOROTHIAZIDE [Concomitant]
     Indication: HYPERTENSION
  6. TASIGNA [Suspect]
     Indication: CHRONIC MYELOID LEUKAEMIA
     Dosage: 400 MG, BID
     Route: 048
     Dates: start: 20060823, end: 20060902
  7. TASIGNA [Suspect]
     Dosage: 400 MG, BID
     Route: 048
     Dates: start: 20060910
  8. TASIGNA [Suspect]
     Dosage: 400 MG, BID
     Route: 048
     Dates: start: 20061016

REACTIONS (4)
  - DIARRHOEA [None]
  - ABDOMINAL DISCOMFORT [None]
  - OROPHARYNGEAL PAIN [None]
  - SUDDEN DEATH [None]
